FAERS Safety Report 15854228 (Version 1)
Quarter: 2019Q1

REPORT INFORMATION
  Report Type: Spontaneous
  Country: US (occurrence: US)
  Receive Date: 20190122
  Receipt Date: 20190122
  Transmission Date: 20190417
  Serious: No
  Sender: FDA-Public Use
  Company Number: US-GLAXOSMITHKLINE-US2019007615

PATIENT
  Age: 48 Year
  Sex: Female

DRUGS (2)
  1. NICODERM CQ [Suspect]
     Active Substance: NICOTINE
     Indication: SMOKING CESSATION THERAPY
     Dosage: 21 MG, UNK
  2. NICODERM CQ [Suspect]
     Active Substance: NICOTINE
     Dosage: 21 UNK, UNK

REACTIONS (6)
  - Application site warmth [Unknown]
  - Wrong technique in product usage process [Unknown]
  - Application site erythema [Unknown]
  - Expired product administered [Unknown]
  - Application site pruritus [Unknown]
  - Application site paraesthesia [Unknown]
